FAERS Safety Report 17100686 (Version 1)
Quarter: 2019Q4

REPORT INFORMATION
  Report Type: Spontaneous
  Country: US (occurrence: US)
  Receive Date: 20191202
  Receipt Date: 20191202
  Transmission Date: 20200122
  Serious: No
  Sender: FDA-Public Use
  Company Number: US-SA-2019SA325462

PATIENT
  Age: 70 Year
  Sex: Female

DRUGS (1)
  1. ACT DRY MOUTH LOZENGE HONEY LEMON [Suspect]
     Active Substance: XYLITOL
     Indication: DRY MOUTH
     Dosage: UNK, UNK
     Route: 065

REACTIONS (1)
  - Cough [Unknown]
